FAERS Safety Report 11316756 (Version 5)
Quarter: 2017Q1

REPORT INFORMATION
  Report Type: Spontaneous
  Country: US (occurrence: US)
  Receive Date: 20150728
  Receipt Date: 20170109
  Transmission Date: 20170428
  Serious: Yes (Other)
  Sender: FDA-Public Use
  Company Number: US-PFIZER INC-2015244704

PATIENT
  Age: 54 Year
  Sex: Female
  Weight: 65.76 kg

DRUGS (4)
  1. METFORMIN [Concomitant]
     Active Substance: METFORMIN HYDROCHLORIDE
     Indication: DIABETES MELLITUS
     Dosage: 10 MG, 1X/DAY
     Route: 048
  2. LYRICA [Suspect]
     Active Substance: PREGABALIN
     Indication: DIABETIC NEUROPATHY
     Dosage: LOWER DOSE
  3. HYDROCODONE [Concomitant]
     Active Substance: HYDROCODONE
     Dosage: 10 MG, AS NEEDED (EVERY FOUR TO EIGHT HOURS)
     Route: 048
  4. LYRICA [Suspect]
     Active Substance: PREGABALIN
     Dosage: 300 MG, 2X/DAY
     Route: 048

REACTIONS (11)
  - Agitation [Unknown]
  - Abasia [Recovering/Resolving]
  - Overdose [Unknown]
  - Pain [Not Recovered/Not Resolved]
  - Decreased activity [Recovering/Resolving]
  - Drug ineffective [Not Recovered/Not Resolved]
  - Paraesthesia [Not Recovered/Not Resolved]
  - Pain in extremity [Recovering/Resolving]
  - Helicobacter gastritis [Recovering/Resolving]
  - Limb discomfort [Recovering/Resolving]
  - Peripheral coldness [Not Recovered/Not Resolved]

NARRATIVE: CASE EVENT DATE: 20161211
